FAERS Safety Report 17671542 (Version 1)
Quarter: 2020Q2

REPORT INFORMATION
  Report Type: Spontaneous
  Country: CZ (occurrence: CZ)
  Receive Date: 20200415
  Receipt Date: 20200415
  Transmission Date: 20200713
  Serious: Yes (Hospitalization)
  Sender: FDA-Public Use
  Company Number: CZ-ROCHE-2582931

PATIENT
  Age: 87 Year
  Sex: Female

DRUGS (1)
  1. ACTILYSE [Suspect]
     Active Substance: ALTEPLASE
     Indication: CEREBROVASCULAR ACCIDENT
     Route: 042
     Dates: start: 20200312, end: 20200312

REACTIONS (2)
  - Drug ineffective [Unknown]
  - Thrombolysis [Recovering/Resolving]

NARRATIVE: CASE EVENT DATE: 20200312
